FAERS Safety Report 11666448 (Version 2)
Quarter: 2017Q2

REPORT INFORMATION
  Report Type: Spontaneous
  Country: CH (occurrence: CH)
  Receive Date: 20151027
  Receipt Date: 20170512
  Transmission Date: 20170829
  Serious: Yes (Other)
  Sender: FDA-Public Use
  Company Number: CH-PFIZER INC-2015359400

PATIENT
  Sex: Male
  Weight: 3 kg

DRUGS (7)
  1. CLEXANE [Suspect]
     Active Substance: ENOXAPARIN SODIUM
     Dosage: 40 MG, 1X/DAY
     Route: 064
     Dates: start: 2015
  2. UVAMIN RETARD [Suspect]
     Active Substance: NITROFURANTOIN
     Indication: URINARY TRACT INFECTION
     Dosage: 100 MG, 2X/DAY
     Route: 064
     Dates: start: 20150719, end: 20150725
  3. SANALEPSI N [Suspect]
     Active Substance: DOXYLAMINE SUCCINATE
     Dosage: 20 GTT, AS NEEDED
     Route: 064
  4. PREDNISON [Suspect]
     Active Substance: PREDNISONE
     Indication: MULTIPLE SCLEROSIS
     Dosage: 60 MG, UNK
     Route: 064
     Dates: start: 20150719
  5. SOLU-MEDROL [Suspect]
     Active Substance: METHYLPREDNISOLONE SODIUM SUCCINATE
     Indication: MULTIPLE SCLEROSIS
     Dosage: 1000 MG, UNK
     Route: 064
     Dates: start: 20150721, end: 20150721
  6. CALCIUM D /01483701/ [Concomitant]
     Dosage: UNK
     Route: 064
  7. NEXIUM [Suspect]
     Active Substance: ESOMEPRAZOLE MAGNESIUM
     Dosage: 40 MG, 1X/DAY
     Route: 064
     Dates: start: 2014

REACTIONS (4)
  - Maternal exposure during pregnancy [Recovered/Resolved]
  - Conjunctivitis [Recovered/Resolved]
  - Premature baby [Recovered/Resolved]
  - Cardiac murmur [Unknown]

NARRATIVE: CASE EVENT DATE: 201412
